FAERS Safety Report 13630314 (Version 3)
Quarter: 2017Q3

REPORT INFORMATION
  Report Type: Spontaneous
  Country: IT (occurrence: IT)
  Receive Date: 20170608
  Receipt Date: 20170712
  Transmission Date: 20171127
  Serious: Yes (Hospitalization)
  Sender: FDA-Public Use
  Company Number: PHHY2017IT081098

PATIENT
  Age: 71 Year
  Sex: Female

DRUGS (3)
  1. SIGNIFOR LAR [Suspect]
     Active Substance: PASIREOTIDE
     Indication: ACROMEGALY
     Dosage: 60 MG, QMO (MONTH)
     Route: 030
     Dates: start: 20170223, end: 20170403
  2. EUTIROX [Concomitant]
     Active Substance: LEVOTHYROXINE SODIUM
     Indication: HYPOTHYROIDISM
     Dosage: UNK
     Route: 048
     Dates: start: 20100101, end: 20170404
  3. METFORMIN [Concomitant]
     Active Substance: METFORMIN HYDROCHLORIDE
     Indication: TYPE 2 DIABETES MELLITUS
     Dosage: 500 MG, UNK
     Route: 048
     Dates: start: 20100101, end: 20170404

REACTIONS (5)
  - Confusional state [Unknown]
  - Polyuria [Unknown]
  - Hyperglycaemia [Recovered/Resolved]
  - Dry mouth [Unknown]
  - Polydipsia [Unknown]

NARRATIVE: CASE EVENT DATE: 20170404
